FAERS Safety Report 21935641 (Version 1)
Quarter: 2023Q1

REPORT INFORMATION
  Report Type: Spontaneous
  Country: US (occurrence: US)
  Receive Date: 20230201
  Receipt Date: 20230201
  Transmission Date: 20230418
  Serious: No
  Sender: FDA-Public Use
  Company Number: US-SA-SAC20221215000898

PATIENT
  Age: 46 Year
  Sex: Male
  Weight: 123.5 kg

DRUGS (5)
  1. DUPIXENT [Suspect]
     Active Substance: DUPILUMAB
     Indication: Eczema nummular
     Dosage: 600 MG, 1X
     Route: 058
     Dates: start: 20221212, end: 20221212
  2. DUPIXENT [Suspect]
     Active Substance: DUPILUMAB
     Dosage: 300 MG, QOW
     Route: 058
  3. NAPROXEN [Concomitant]
     Active Substance: NAPROXEN
     Dosage: 250 MG
  4. ATENOLOL [Concomitant]
     Active Substance: ATENOLOL
     Dosage: 50 MG
  5. CHLORTHALIDONE [Concomitant]
     Active Substance: CHLORTHALIDONE
     Dosage: 25 MG

REACTIONS (3)
  - Skin exfoliation [Not Recovered/Not Resolved]
  - Rash pruritic [Recovered/Resolved]
  - Rash erythematous [Recovered/Resolved]

NARRATIVE: CASE EVENT DATE: 20230101
